FAERS Safety Report 16145014 (Version 1)
Quarter: 2019Q2

REPORT INFORMATION
  Report Type: Report from Study
  Country: None (occurrence: DE)
  Receive Date: 20190402
  Receipt Date: 20190402
  Transmission Date: 20190711
  Serious: Yes (Other)
  Sender: FDA-Public Use
  Company Number: DE-KADMON PHARMACEUTICALS, LLC-KAD-201802-01225

PATIENT
  Age: 50 Year
  Sex: Male
  Weight: 74 kg

DRUGS (23)
  1. EMTRICITABINE [Suspect]
     Active Substance: EMTRICITABINE
     Indication: HIV INFECTION
     Dosage: 200 MG
     Dates: start: 20131118
  2. FUCICORT [Concomitant]
     Active Substance: BETAMETHASONE VALERATE\FUSIDIC ACID
     Dosage: AS REQUIRED
     Dates: start: 20140723
  3. CEPHALEXIN. [Concomitant]
     Active Substance: CEPHALEXIN
     Dosage: 1000 MG
     Dates: start: 20150812, end: 20150815
  4. IBUPROFEN. [Concomitant]
     Active Substance: IBUPROFEN
     Dosage: 3 DOSAGE FORM (1-1-1)
     Dates: start: 20160613
  5. TRAMAL [Concomitant]
     Active Substance: TRAMADOL
     Dosage: ONE; AS REQUIRED
     Dates: start: 20160613
  6. BISOPROLOL [Concomitant]
     Active Substance: BISOPROLOL
     Dates: start: 20061101
  7. AZITHROMYCIN ANHYDROUS. [Concomitant]
     Active Substance: AZITHROMYCIN ANHYDROUS
     Dates: start: 20150630, end: 20150715
  8. INDOMET [Concomitant]
     Dosage: 50 MG (1-1-0)
     Dates: start: 20140820
  9. ROCEPHIN [Concomitant]
     Active Substance: CEFTRIAXONE SODIUM
     Dates: start: 20170313
  10. BETAISODONA [Concomitant]
     Active Substance: POVIDONE-IODINE
     Dosage: 30 G
     Dates: start: 20150812, end: 20150915
  11. EMTRICITABINE/RILPIVIRINE/TENOFOVIR [Suspect]
     Active Substance: EMTRICITABINE\RILPIVIRINE\TENOFOVIR DISOPROXIL FUMARATE
     Indication: HIV INFECTION
     Dosage: 1 DOSAGE FORM
     Dates: start: 20131118
  12. CEFUROXIME. [Concomitant]
     Active Substance: CEFUROXIME
     Dates: start: 20170313
  13. TENOFOVIR DISOPROXIL FUMARATE. [Suspect]
     Active Substance: TENOFOVIR DISOPROXIL FUMARATE
     Indication: HIV INFECTION
     Dosage: 245 MG
     Dates: start: 20160613
  14. EMTRICITABINE [Suspect]
     Active Substance: EMTRICITABINE
     Dosage: 1 DOSAGE FORM
  15. RILPIVIRINE [Suspect]
     Active Substance: RILPIVIRINE
     Indication: HIV INFECTION
     Dosage: 25
     Route: 048
     Dates: start: 20160613
  16. AZITHROMYCIN ANHYDROUS. [Concomitant]
     Active Substance: AZITHROMYCIN ANHYDROUS
     Dosage: 500 MG
     Dates: start: 20150613
  17. AFLURIA NOS [Concomitant]
     Active Substance: INFLUENZA VIRUS VACCINE TRIVALENT TYPE A+B AFLURIA
     Dosage: 0.5 ML
     Dates: start: 20171009, end: 20171009
  18. VAXIGRIP [Concomitant]
     Active Substance: INFLUENZA VIRUS VACCINE
     Dates: start: 20151021, end: 20151021
  19. VIOFORMO [Concomitant]
     Dosage: ONE, AS REQUIRED
     Dates: start: 20160613
  20. PEGASYS [Suspect]
     Active Substance: PEGINTERFERON ALFA-2A
     Indication: CHRONIC HEPATITIS C
     Dosage: 180 MCG
     Route: 058
     Dates: start: 20131118, end: 20140109
  21. VALTREX [Concomitant]
     Active Substance: VALACYCLOVIR HYDROCHLORIDE
     Dosage: 2 DOSAGE FORMS
     Dates: start: 20160613
  22. CEFTRIAXON [Concomitant]
     Active Substance: CEFTRIAXONE
     Dates: start: 20150812, end: 20150815
  23. RIBAVIRIN. [Suspect]
     Active Substance: RIBAVIRIN
     Indication: CHRONIC HEPATITIS C
     Dosage: 1000 MG (CUMULATIVE DOSE TO FIRST REACTION: 52,000 MG)
     Route: 048
     Dates: start: 20131118, end: 20140109

REACTIONS (4)
  - Haemorrhoids thrombosed [Recovered/Resolved]
  - Facial paresis [Recovered/Resolved]
  - Venous thrombosis [Recovered/Resolved]
  - Skin lesion [Recovered/Resolved]

NARRATIVE: CASE EVENT DATE: 20170306
